FAERS Safety Report 20612430 (Version 1)
Quarter: 2022Q1

REPORT INFORMATION
  Report Type: Spontaneous
  Country: JP (occurrence: JP)
  Receive Date: 20220318
  Receipt Date: 20220318
  Transmission Date: 20220423
  Serious: Yes (Hospitalization, Other)
  Sender: FDA-Public Use
  Company Number: JP-TAKEDA-2022TJP030279

PATIENT

DRUGS (1)
  1. ADCETRIS [Suspect]
     Active Substance: BRENTUXIMAB VEDOTIN
     Indication: Hodgkin^s disease
     Dosage: 0.9 MILLIGRAM/KILOGRAM
     Route: 041
     Dates: start: 20220207

REACTIONS (2)
  - Thrombosis [Recovering/Resolving]
  - Hypoaesthesia [Not Recovered/Not Resolved]
